FAERS Safety Report 8473307-9 (Version None)
Quarter: 2012Q2

REPORT INFORMATION
  Report Type: 
  Country: None (occurrence: None)
  Receive Date: 20120628
  Receipt Date: 20120618
  Transmission Date: 20120825
  Serious: Yes (Hospitalization, Disabling)
  Sender: FDA-Public Use
  Company Number: JP-BRISTOL-MYERS SQUIBB COMPANY-15971237

PATIENT
  Age: 67 Year
  Sex: Male
  Weight: 51 kg

DRUGS (9)
  1. ZOLPIDEM [Concomitant]
     Dosage: TABS
     Dates: start: 20110407, end: 20110804
  2. ABILIFY [Interacting]
     Indication: HALLUCINATION
     Dosage: 28JUN10:17MAR:18MG,18MAR:8JUL:15MG,9:31JUL:12MG,1:4AUG:9MG,26:31AUG:3MG,1:7SEP:6MG,8:13SEP11:9MG
     Route: 048
     Dates: start: 20100628
  3. ABILIFY [Suspect]
     Indication: SCHIZOPHRENIA
     Dosage: DOSE:12MG,9MG. RESTARTED 26AUG11-31AUG11, 3MG/DAY. 1SEP11-7SEP11 6MG, 8SEP-13SEP 9MG
     Route: 048
     Dates: start: 20100101
  4. CLARITHROMYCIN [Interacting]
     Indication: UPPER RESPIRATORY TRACT INFLAMMATION
     Dosage: TABS
     Route: 048
     Dates: start: 20110716, end: 20110720
  5. PROMETHAZINE HCL [Concomitant]
     Dosage: TABS
     Dates: start: 20110407, end: 20110804
  6. CLARITHROMYCIN [Concomitant]
     Indication: UPPER RESPIRATORY TRACT INFECTION
  7. NITRAZEPAM [Concomitant]
     Dosage: TABS
     Dates: start: 20100628, end: 20110804
  8. CLARITHROMYCIN [Concomitant]
     Indication: PHARYNGITIS
  9. CLONAZEPAM [Concomitant]
     Dosage: 1DF = TAB
     Dates: start: 20110513, end: 20110804

REACTIONS (7)
  - RHABDOMYOLYSIS [None]
  - RENAL FAILURE ACUTE [None]
  - BRADYKINESIA [None]
  - SALIVARY HYPERSECRETION [None]
  - DRUG INTERACTION [None]
  - BLOOD CREATINE PHOSPHOKINASE INCREASED [None]
  - URINARY RETENTION [None]
